FAERS Safety Report 22173840 (Version 3)
Quarter: 2023Q4

REPORT INFORMATION
  Report Type: Spontaneous
  Country: CA (occurrence: CA)
  Receive Date: 20230404
  Receipt Date: 20231012
  Transmission Date: 20240110
  Serious: Yes (Hospitalization, Other)
  Sender: FDA-Public Use
  Company Number: CA-BAUSCH-BL-2023-005137

PATIENT
  Age: 50 Year
  Sex: Male

DRUGS (10)
  1. DEXAMETHASONE [Suspect]
     Active Substance: DEXAMETHASONE
     Indication: Immune thrombocytopenia
     Route: 065
  2. DEXAMETHASONE [Suspect]
     Active Substance: DEXAMETHASONE
     Indication: Immune thrombocytopenia
     Route: 048
  3. ELTROMBOPAG OLAMINE [Suspect]
     Active Substance: ELTROMBOPAG OLAMINE
     Indication: Immune thrombocytopenia
     Route: 048
  4. ELTROMBOPAG OLAMINE [Suspect]
     Active Substance: ELTROMBOPAG OLAMINE
     Route: 065
  5. ELTROMBOPAG OLAMINE [Suspect]
     Active Substance: ELTROMBOPAG OLAMINE
     Route: 048
  6. ELTROMBOPAG OLAMINE [Suspect]
     Active Substance: ELTROMBOPAG OLAMINE
     Route: 048
  7. ELTROMBOPAG OLAMINE [Suspect]
     Active Substance: ELTROMBOPAG OLAMINE
     Route: 048
  8. ELTROMBOPAG OLAMINE [Suspect]
     Active Substance: ELTROMBOPAG OLAMINE
     Route: 065
  9. ELTROMBOPAG OLAMINE [Suspect]
     Active Substance: ELTROMBOPAG OLAMINE
     Route: 065
  10. ELTROMBOPAG OLAMINE [Suspect]
     Active Substance: ELTROMBOPAG OLAMINE
     Route: 048

REACTIONS (17)
  - Platelet count increased [Recovered/Resolved]
  - Gingival bleeding [Recovered/Resolved]
  - Musculoskeletal stiffness [Recovered/Resolved]
  - Fatigue [Recovered/Resolved]
  - Anxiety [Recovered/Resolved]
  - Food poisoning [Recovered/Resolved]
  - Platelet count decreased [Recovered/Resolved]
  - Immune thrombocytopenia [Recovered/Resolved]
  - Thrombosis [Recovered/Resolved]
  - Deep vein thrombosis [Recovered/Resolved]
  - COVID-19 [Recovered/Resolved]
  - Rash macular [Recovered/Resolved]
  - Influenza [Recovered/Resolved]
  - Malaise [Recovered/Resolved]
  - Drug ineffective [Recovered/Resolved]
  - Product use in unapproved indication [Recovered/Resolved]
  - Intentional product misuse [Recovered/Resolved]
